FAERS Safety Report 13842448 (Version 1)
Quarter: 2017Q3

REPORT INFORMATION
  Report Type: Spontaneous
  Country: US (occurrence: US)
  Receive Date: 20170807
  Receipt Date: 20170807
  Transmission Date: 20171127
  Serious: Yes (Disabling)
  Sender: FDA-Public Use
  Company Number: None

PATIENT
  Age: 65 Year
  Sex: Male
  Weight: 81 kg

DRUGS (6)
  1. TACLONEX [Concomitant]
     Active Substance: BETAMETHASONE DIPROPIONATE\CALCIPOTRIENE\CALCIPOTRIENE HYDRATE
  2. OTEZLA [Suspect]
     Active Substance: APREMILAST
     Indication: PSORIASIS
     Dosage: ?          QUANTITY:3 TABLET(S);?
     Route: 048
     Dates: start: 20170710, end: 20170712
  3. CALCIPOTRIENE. [Concomitant]
     Active Substance: CALCIPOTRIENE
  4. ACETAMINOHEN COD 3 TAB [Concomitant]
     Active Substance: ACETAMINOPHEN\CODEINE PHOSPHATE
  5. BETAMETHASONE DIPROPIONATE OINTMENT (ACTAVIS) [Concomitant]
     Active Substance: BETAMETHASONE DIPROPIONATE
  6. IBUPROFEN. [Concomitant]
     Active Substance: IBUPROFEN

REACTIONS (5)
  - Decreased appetite [None]
  - Insomnia [None]
  - Migraine [None]
  - Asthenia [None]
  - Arthritis [None]

NARRATIVE: CASE EVENT DATE: 20170712
